FAERS Safety Report 9227309 (Version 1)
Quarter: 2013Q2

REPORT INFORMATION
  Report Type: Spontaneous
  Country: BR (occurrence: BR)
  Receive Date: 20130412
  Receipt Date: 20130412
  Transmission Date: 20140414
  Serious: Yes (Other)
  Sender: FDA-Public Use
  Company Number: PHHY2013BR035145

PATIENT
  Sex: Female
  Weight: 67 kg

DRUGS (4)
  1. ACLASTA [Suspect]
     Indication: OSTEOPOROSIS
     Dosage: 5 MG, ANNUAL
     Route: 042
  2. CALCIUM [Concomitant]
     Dosage: 2 DF (2 CAPSULES), A DAY
     Route: 048
  3. PROTOS (STRONTIUM RANELATE) [Concomitant]
     Dosage: 1 DF (1 SACHET), A DAY
     Route: 048
  4. MAREVAN [Concomitant]
     Indication: THROMBOSIS
     Dosage: 0.5 (HALF TABLET), A DAY
     Route: 048

REACTIONS (3)
  - Fall [Recovered/Resolved]
  - Limb injury [Recovered/Resolved]
  - Wound haemorrhage [Recovered/Resolved]
